FAERS Safety Report 9237707 (Version 2)
Quarter: 2013Q2

REPORT INFORMATION
  Report Type: Spontaneous
  Country: ES (occurrence: ES)
  Receive Date: 20130418
  Receipt Date: 20130513
  Transmission Date: 20140414
  Serious: Yes (Other)
  Sender: FDA-Public Use
  Company Number: ES-RANBAXY-2013RR-67614

PATIENT
  Age: 37 Year
  Sex: Female

DRUGS (4)
  1. CLARITHROMYCIN [Suspect]
     Indication: PNEUMONIA
     Dosage: 500 MG/ 12H
     Route: 048
  2. CEFTRIAXONE [Concomitant]
     Indication: PNEUMONIA
     Dosage: 2 G/ 24H
     Route: 065
  3. DOXYCYCLINE [Concomitant]
     Indication: PNEUMONIA
     Dosage: 100 MG/ 12H
     Route: 065
  4. IMIPENEM [Concomitant]
     Indication: PNEUMONIA
     Dosage: 500 MG/ 6H
     Route: 065

REACTIONS (4)
  - Hallucination [Recovered/Resolved]
  - Discomfort [Unknown]
  - Insomnia [Unknown]
  - Feeling jittery [Unknown]
